FAERS Safety Report 6720516-2 (Version None)
Quarter: 2010Q2

REPORT INFORMATION
  Report Type: 
  Country: None (occurrence: None)
  Receive Date: 20100506
  Receipt Date: 20100422
  Transmission Date: 20101027
  Serious: Yes (Other)
  Sender: FDA-Public Use
  Company Number: 167-20484-09090344

PATIENT
  Age: 40 Year
  Sex: Female
  Weight: 70.6 kg

DRUGS (5)
  1. INNOHEP [Suspect]
     Indication: DRUG USE FOR UNKNOWN INDICATION
     Dosage: (3500 IU, 1 IN 1 D), SUBCUTANEOUS; (2 IN 1 D), SUBCUTANEOUS
     Route: 058
     Dates: start: 20000620, end: 20000810
  2. INNOHEP [Suspect]
     Indication: DRUG USE FOR UNKNOWN INDICATION
     Dosage: (3500 IU, 1 IN 1 D), SUBCUTANEOUS; (2 IN 1 D), SUBCUTANEOUS
     Route: 058
     Dates: start: 20000810, end: 20000821
  3. INNOHEP [Suspect]
     Indication: DRUG USE FOR UNKNOWN INDICATION
     Dosage: (3500 IU, 1 IN 1 D), SUBCUTANEOUS; (2 IN 1 D), SUBCUTANEOUS
     Route: 058
     Dates: start: 20000821, end: 20001009
  4. INNOHEP [Suspect]
     Indication: DRUG USE FOR UNKNOWN INDICATION
     Dosage: (3500 IU, 1 IN 1 D), SUBCUTANEOUS; (2 IN 1 D), SUBCUTANEOUS
     Route: 058
     Dates: start: 20001009
  5. ASPIRIN [Concomitant]

REACTIONS (5)
  - DRUG EXPOSURE DURING PREGNANCY [None]
  - FOETAL GROWTH RETARDATION [None]
  - OLIGOHYDRAMNIOS [None]
  - RUBELLA ANTIBODY POSITIVE [None]
  - STILLBIRTH [None]
